FAERS Safety Report 17415789 (Version 1)
Quarter: 2020Q1

REPORT INFORMATION
  Report Type: Spontaneous
  Country: DK (occurrence: DK)
  Receive Date: 20200213
  Receipt Date: 20200213
  Transmission Date: 20200409
  Serious: Yes (Other)
  Sender: FDA-Public Use
  Company Number: DK-ELI_LILLY_AND_COMPANY-DK202002001162

PATIENT
  Age: 51 Year
  Sex: Female

DRUGS (1)
  1. ZYPREXA [Suspect]
     Active Substance: OLANZAPINE
     Indication: PSYCHOTIC DISORDER
     Dosage: UNK MG, UNKNOWN
     Route: 065
     Dates: start: 201907, end: 202001

REACTIONS (2)
  - Angle closure glaucoma [Unknown]
  - Metabolic disorder [Unknown]

NARRATIVE: CASE EVENT DATE: 201912
